FAERS Safety Report 23569201 (Version 1)
Quarter: 2024Q1

REPORT INFORMATION
  Report Type: Spontaneous
  Country: US (occurrence: US)
  Receive Date: 20240227
  Receipt Date: 20240227
  Transmission Date: 20240410
  Serious: Yes (Other)
  Sender: FDA-Public Use
  Company Number: US-PROCTER_AND_GAMBLE-PH24001582

PATIENT
  Age: 70 Year
  Sex: Male

DRUGS (2)
  1. VICKS SINEX 12 HOUR DECONGESTANT ULTRA FINE MIST [Suspect]
     Active Substance: OXYMETAZOLINE HYDROCHLORIDE
     Indication: Sleep apnoea syndrome
     Dosage: 2 SPRAYS EACH NOSTRIL, 1-2 TIMES PER NIGHT, 3-4 NIGHTS PER WEEK
     Route: 045
  2. VICKS SINEX 12 HOUR DECONGESTANT ULTRA FINE MIST [Suspect]
     Active Substance: OXYMETAZOLINE HYDROCHLORIDE
     Indication: Seasonal allergy

REACTIONS (3)
  - Atrial fibrillation [Unknown]
  - Drug effective for unapproved indication [Unknown]
  - Incorrect product administration duration [Unknown]
